FAERS Safety Report 4394533-4 (Version None)
Quarter: 2004Q2

REPORT INFORMATION
  Report Type: 
  Country: None (occurrence: None)
  Receive Date: 20040621
  Receipt Date: 19980828
  Transmission Date: 20050107
  Serious: Yes (Death)
  Sender: FDA-Public Use
  Company Number: KII-1998-0009520

PATIENT
  Sex: Female

DRUGS (3)
  1. OXYCONTIN [Suspect]
  2. MUSCLE RELAXANTS [Suspect]
  3. ANTIANXIETY [Suspect]

REACTIONS (1)
  - MULTIPLE DRUG OVERDOSE [None]
